FAERS Safety Report 7925257-1 (Version None)
Quarter: 2011Q4

REPORT INFORMATION
  Report Type: 
  Country: None (occurrence: None)
  Receive Date: 20111118
  Receipt Date: 20110404
  Transmission Date: 20120403
  Serious: No
  Sender: FDA-Public Use
  Company Number: US-AMGEN-USASP2011001409

PATIENT
  Age: 48 Year
  Sex: Female

DRUGS (1)
  1. ENBREL [Suspect]
     Indication: RHEUMATOID ARTHRITIS
     Dosage: 50 MG, QWK
     Dates: start: 20080201

REACTIONS (7)
  - CHEST PAIN [None]
  - RHEUMATOID ARTHRITIS [None]
  - PAIN IN EXTREMITY [None]
  - MUSCULOSKELETAL PAIN [None]
  - CONTUSION [None]
  - THERAPEUTIC RESPONSE DECREASED [None]
  - NECK PAIN [None]
